FAERS Safety Report 6506909-7 (Version None)
Quarter: 2009Q4

REPORT INFORMATION
  Report Type: 
  Country: None (occurrence: None)
  Receive Date: 20091127
  Receipt Date: 20090923
  Transmission Date: 20100525
  Serious: Yes (Hospitalization)
  Sender: FDA-Public Use
  Company Number: US200909006337

PATIENT
  Age: 41 Year
  Sex: Female

DRUGS (1)
  1. BYETTA [Suspect]
     Dates: start: 20060301, end: 20080101

REACTIONS (1)
  - PANCREATITIS [None]
